FAERS Safety Report 7170439-2 (Version None)
Quarter: 2010Q4

REPORT INFORMATION
  Report Type: 
  Country: None (occurrence: None)
  Receive Date: 20101217
  Receipt Date: 20101208
  Transmission Date: 20110411
  Serious: Yes (Death, Other)
  Sender: FDA-Public Use
  Company Number: JP-ROCHE-747931

PATIENT
  Sex: Female
  Weight: 38 kg

DRUGS (5)
  1. AVASTIN [Suspect]
     Indication: COLON CANCER METASTATIC
     Route: 041
     Dates: start: 20100202
  2. ELPLAT [Suspect]
     Indication: COLON CANCER METASTATIC
     Route: 041
     Dates: start: 20100105, end: 20100413
  3. 5-FU [Suspect]
     Indication: COLON CANCER METASTATIC
     Dosage: ROUTE: INTRAVENOUS BOLUS
     Route: 042
     Dates: start: 20100105, end: 20100413
  4. 5-FU [Suspect]
     Dosage: ROUTE: INTRAVENOUS DRIP
     Route: 042
     Dates: start: 20100105, end: 20100401
  5. LOXOPROFEN SODIUM [Concomitant]
     Dates: start: 20100515

REACTIONS (3)
  - DISEASE PROGRESSION [None]
  - LARGE INTESTINE PERFORATION [None]
  - PERITONITIS [None]
